FAERS Safety Report 23369856 (Version 1)
Quarter: 2024Q1

REPORT INFORMATION
  Report Type: Spontaneous
  Country: US (occurrence: None)
  Receive Date: 20240105
  Receipt Date: 20240105
  Transmission Date: 20240410
  Serious: Yes (Other)
  Sender: FDA-Public Use
  Company Number: 2023A295767

PATIENT

DRUGS (1)
  1. CALQUENCE [Suspect]
     Active Substance: ACALABRUTINIB
     Route: 048

REACTIONS (6)
  - Small cell lung cancer [Unknown]
  - White blood cell count abnormal [Unknown]
  - Immunodeficiency [Unknown]
  - Leukaemia [Unknown]
  - Headache [Recovered/Resolved]
  - Sleep disorder [Unknown]
